FAERS Safety Report 5227536-8 (Version None)
Quarter: 2007Q1

REPORT INFORMATION
  Report Type: 
  Country: None (occurrence: None)
  Receive Date: 20070202
  Receipt Date: 20070130
  Transmission Date: 20070707
  Serious: Yes (Other)
  Sender: FDA-Public Use
  Company Number: DE-SHR-DE-2007-003158

PATIENT
  Age: 90 Year
  Sex: Female

DRUGS (1)
  1. ULTRAVIST 300 [Suspect]
     Dosage: 120 ML, 1 DOSE

REACTIONS (4)
  - CONFUSIONAL STATE [None]
  - HEADACHE [None]
  - HYPERSENSITIVITY [None]
  - TRANSIENT PSYCHOSIS [None]
